FAERS Safety Report 5177388-X (Version None)
Quarter: 2006Q4

REPORT INFORMATION
  Report Type: 
  Country: None (occurrence: None)
  Receive Date: 20061207
  Receipt Date: 20061128
  Transmission Date: 20070319
  Serious: Yes (Other)
  Sender: FDA-Public Use
  Company Number: 2006148318

PATIENT
  Age: 88 Year
  Sex: Female

DRUGS (2)
  1. AROMASIN [Suspect]
     Dosage: ORAL
     Route: 048
     Dates: start: 20061101
  2. ANASTROZOLE [Concomitant]

REACTIONS (1)
  - CATARACT [None]
